FAERS Safety Report 25578177 (Version 7)
Quarter: 2025Q3

REPORT INFORMATION
  Report Type: Spontaneous
  Country: US (occurrence: US)
  Receive Date: 20250718
  Receipt Date: 20250805
  Transmission Date: 20251020
  Serious: Yes (Hospitalization, Other)
  Sender: PFIZER
  Company Number: US-PFIZER INC-202200785100

PATIENT
  Age: 96 Year
  Sex: Male

DRUGS (3)
  1. BOSULIF [Suspect]
     Active Substance: BOSUTINIB MONOHYDRATE
     Indication: Chronic myeloid leukaemia
     Dosage: TAKE TWO 100 MG TABLET ONCE DAILY WITH FOOD
     Route: 048
  2. BOSULIF [Suspect]
     Active Substance: BOSUTINIB MONOHYDRATE
     Dosage: 100 MG TAKE 2 TABLETS DAILY BY MOUTH
     Route: 048
  3. BOSULIF [Suspect]
     Active Substance: BOSUTINIB MONOHYDRATE
     Dosage: 100 MG TABLET TAKE 2 TABLETS BY MOUTH ONCE DAILY WITH FOOD
     Route: 048

REACTIONS (7)
  - Fall [Unknown]
  - Full blood count increased [Not Recovered/Not Resolved]
  - Headache [Not Recovered/Not Resolved]
  - Second primary malignancy [Unknown]
  - Acute leukaemia [Unknown]
  - Leukocytosis [Unknown]
  - Anaemia [Unknown]
